FAERS Safety Report 5563005-3 (Version None)
Quarter: 2007Q4

REPORT INFORMATION
  Report Type: 
  Country: None (occurrence: None)
  Receive Date: 20071217
  Receipt Date: 20071211
  Transmission Date: 20080405
  Serious: Yes (Death)
  Sender: FDA-Public Use
  Company Number: FR-AVENTIS-200713954FR

PATIENT
  Age: 78 Year
  Sex: Female

DRUGS (5)
  1. LOVENOX [Suspect]
     Dates: start: 20070306, end: 20070319
  2. ESBERIVEN                          /00021901/ [Concomitant]
     Dates: end: 20070301
  3. TOCO [Concomitant]
     Route: 048
     Dates: end: 20070301
  4. DIFRAREL                           /00322801/ [Concomitant]
     Route: 048
     Dates: end: 20070301
  5. ATHYMIL [Concomitant]
     Route: 048
     Dates: end: 20070301

REACTIONS (1)
  - HEPARIN-INDUCED THROMBOCYTOPENIA [None]
